FAERS Safety Report 5407199-9 (Version None)
Quarter: 2007Q3

REPORT INFORMATION
  Report Type: 
  Country: None (occurrence: None)
  Receive Date: 20070807
  Receipt Date: 20070801
  Transmission Date: 20080115
  Serious: Yes (Other)
  Sender: FDA-Public Use
  Company Number: A0652407A

PATIENT
  Age: 41 Year
  Sex: Female

DRUGS (2)
  1. PARNATE [Suspect]
     Indication: DEPRESSION
     Dosage: 20VA TWICE PER DAY
     Route: 048
  2. XANAX [Concomitant]

REACTIONS (8)
  - AGITATION [None]
  - ANXIETY [None]
  - COLOUR BLINDNESS [None]
  - DIZZINESS [None]
  - HYPOTENSION [None]
  - MALAISE [None]
  - PHARMACEUTICAL PRODUCT COMPLAINT [None]
  - VISION BLURRED [None]
